FAERS Safety Report 21381988 (Version 3)
Quarter: 2024Q1

REPORT INFORMATION
  Report Type: Report from Study
  Country: US (occurrence: US)
  Receive Date: 20220927
  Receipt Date: 20240318
  Transmission Date: 20240410
  Serious: Yes (Other)
  Sender: FDA-Public Use
  Company Number: US-TAKEDA-2022TUS067788

PATIENT
  Sex: Female

DRUGS (4)
  1. TEDUGLUTIDE [Suspect]
     Active Substance: TEDUGLUTIDE
     Indication: Product used for unknown indication
     Dosage: UNK, QD
     Route: 058
     Dates: start: 20220721
  2. TEDUGLUTIDE [Suspect]
     Active Substance: TEDUGLUTIDE
     Indication: Product used for unknown indication
     Dosage: UNK, QD
     Route: 058
     Dates: start: 20220721
  3. TEDUGLUTIDE [Suspect]
     Active Substance: TEDUGLUTIDE
     Indication: Product used for unknown indication
     Dosage: UNK, QD
     Route: 058
     Dates: start: 20220721
  4. TEDUGLUTIDE [Suspect]
     Active Substance: TEDUGLUTIDE
     Indication: Product used for unknown indication
     Dosage: UNK, QD
     Route: 058
     Dates: start: 20220721

REACTIONS (7)
  - Hysterectomy [Unknown]
  - Bowel movement irregularity [Unknown]
  - Hot flush [Unknown]
  - Night sweats [Unknown]
  - Weight increased [Unknown]
  - Tremor [Unknown]
  - Injection site haemorrhage [Unknown]
